FAERS Safety Report 5136445-4 (Version None)
Quarter: 2006Q4

REPORT INFORMATION
  Report Type: 
  Country: None (occurrence: None)
  Receive Date: 20061027
  Receipt Date: 20060516
  Transmission Date: 20070319
  Serious: No
  Sender: FDA-Public Use
  Company Number: US-BRISTOL-MYERS SQUIBB COMPANY-13378682

PATIENT
  Sex: Male

DRUGS (1)
  1. KENALOG-40 [Suspect]
     Indication: ERECTILE DYSFUNCTION

REACTIONS (4)
  - FLUSHING [None]
  - HYPOAESTHESIA [None]
  - PALPITATIONS [None]
  - PENIS DISORDER [None]
